FAERS Safety Report 5166390-X (Version None)
Quarter: 2006Q4

REPORT INFORMATION
  Report Type: 
  Country: None (occurrence: None)
  Receive Date: 20061129
  Receipt Date: 20061116
  Transmission Date: 20070319
  Serious: Yes (Life-Threatening)
  Sender: FDA-Public Use
  Company Number: 15090

PATIENT
  Age: 68 Year
  Sex: Male

DRUGS (5)
  1. CYTARABINE [Suspect]
     Indication: ACUTE MYELOID LEUKAEMIA
     Dosage: 20 MG/M2 PER_CYCLE SC
     Route: 058
     Dates: start: 20060823, end: 20060901
  2. CIPROFLOXACIN [Concomitant]
  3. BISEPTOL [Concomitant]
  4. ALLOPURINOL [Concomitant]
  5. FLUCONAZOLE [Concomitant]

REACTIONS (16)
  - APPARENT LIFE THREATENING EVENT [None]
  - ASTHENIA [None]
  - BLAST CELL COUNT INCREASED [None]
  - BLOOD CULTURE POSITIVE [None]
  - CHILLS [None]
  - COAGULOPATHY [None]
  - ENTEROCOCCAL INFECTION [None]
  - ESCHERICHIA INFECTION [None]
  - HAEMOGLOBIN DECREASED [None]
  - HEADACHE [None]
  - PNEUMONIA [None]
  - PYREXIA [None]
  - RED BLOOD CELL COUNT DECREASED [None]
  - SEPSIS [None]
  - THROMBOCYTOPENIA [None]
  - WHITE BLOOD CELL COUNT DECREASED [None]
